FAERS Safety Report 20759757 (Version 1)
Quarter: 2022Q2

REPORT INFORMATION
  Report Type: Spontaneous
  Country: US (occurrence: US)
  Receive Date: 20220427
  Receipt Date: 20220427
  Transmission Date: 20220721
  Serious: No
  Sender: FDA-Public Use
  Company Number: US-PFIZER INC-202101618263

PATIENT
  Age: 34 Year
  Sex: Female
  Weight: 104.33 kg

DRUGS (1)
  1. CHANTIX [Suspect]
     Active Substance: VARENICLINE TARTRATE
     Indication: Smoking cessation therapy
     Dosage: 5MG FOR THREE DAYS/STARTED TWO PILLS A DAY ON FOURTH DAY
     Dates: start: 202006, end: 202007

REACTIONS (4)
  - Recalled product administered [Recovered/Resolved]
  - Product dose omission issue [Recovered/Resolved with Sequelae]
  - Vomiting [Recovered/Resolved]
  - Nausea [Recovered/Resolved]

NARRATIVE: CASE EVENT DATE: 20200601
